FAERS Safety Report 7555326-X (Version None)
Quarter: 2011Q2

REPORT INFORMATION
  Report Type: 
  Country: None (occurrence: None)
  Receive Date: 20110617
  Receipt Date: 20110606
  Transmission Date: 20111010
  Serious: Yes (Other)
  Sender: FDA-Public Use
  Company Number: PHHY2011US22218

PATIENT
  Sex: Male
  Weight: 106.12 kg

DRUGS (7)
  1. NIACIN [Concomitant]
  2. VITAMIN D [Concomitant]
     Dosage: 400 U, Q7D
     Route: 048
  3. ASPIRIN [Concomitant]
     Dosage: 81 MG, DAILY
     Route: 048
  4. DIOVAN [Concomitant]
  5. EXJADE [Suspect]
     Indication: NEOPLASM
     Dosage: 1000 MG DAILY
     Route: 048
     Dates: start: 20100218
  6. EXJADE [Suspect]
     Indication: IRON OVERLOAD
  7. AMARYL [Concomitant]
     Dosage: 2 MG, DAILY
     Route: 048

REACTIONS (8)
  - BLOOD UREA INCREASED [None]
  - RENAL DISORDER [None]
  - CARBON DIOXIDE DECREASED [None]
  - SERUM FERRITIN INCREASED [None]
  - BLOOD CHLORIDE INCREASED [None]
  - BLOOD CREATININE INCREASED [None]
  - DEAFNESS [None]
  - BLOOD GLUCOSE INCREASED [None]
